FAERS Safety Report 13746265 (Version 1)
Quarter: 2017Q3

REPORT INFORMATION
  Report Type: Spontaneous
  Country: US (occurrence: US)
  Receive Date: 20170712
  Receipt Date: 20170712
  Transmission Date: 20171127
  Serious: Yes (Hospitalization)
  Sender: FDA-Public Use
  Company Number: None

PATIENT
  Age: 64 Year
  Sex: Female
  Weight: 66 kg

DRUGS (1)
  1. MEMANTINE HYDROCHLORIDE. [Suspect]
     Active Substance: MEMANTINE HYDROCHLORIDE
     Dates: end: 20170611

REACTIONS (11)
  - Gait disturbance [None]
  - Diplopia [None]
  - Asthenia [None]
  - Dysarthria [None]
  - Vision blurred [None]
  - Somnolence [None]
  - Speech disorder [None]
  - Neuropathy peripheral [None]
  - Cognitive disorder [None]
  - Aphasia [None]
  - Fatigue [None]

NARRATIVE: CASE EVENT DATE: 20160609
